FAERS Safety Report 24430955 (Version 2)
Quarter: 2025Q3

REPORT INFORMATION
  Report Type: Spontaneous
  Country: US (occurrence: US)
  Receive Date: 20241014
  Receipt Date: 20250924
  Transmission Date: 20251020
  Serious: No
  Sender: ROCHE
  Company Number: US-ROCHE-10000101521

PATIENT
  Sex: Female

DRUGS (1)
  1. COTELLIC [Suspect]
     Active Substance: COBIMETINIB FUMARATE
     Indication: Product used for unknown indication
     Route: 065
     Dates: start: 20240711

REACTIONS (7)
  - Drug ineffective [Unknown]
  - Joint swelling [Unknown]
  - Palpitations [Unknown]
  - Rash [Unknown]
  - Bone pain [Unknown]
  - Myalgia [Unknown]
  - Diarrhoea [Unknown]
